FAERS Safety Report 9225127 (Version 1)
Quarter: 2013Q2

REPORT INFORMATION
  Report Type: Spontaneous
  Country: US (occurrence: US)
  Receive Date: 20130411
  Receipt Date: 20130411
  Transmission Date: 20140414
  Serious: No
  Sender: FDA-Public Use
  Company Number: US-VERTEX PHARMACEUTICALS INC.-2013-004685

PATIENT
  Age: 61 Year
  Sex: Male
  Weight: 100 kg

DRUGS (4)
  1. INCIVEK [Suspect]
     Indication: HEPATITIS C
     Dosage: 750 MG, TID
     Route: 048
     Dates: start: 20130405
  2. RIBAVIRIN [Suspect]
     Indication: HEPATITIS C
     Dosage: 400 MG, BID
     Route: 048
     Dates: start: 20130405
  3. PEGASYS [Suspect]
     Indication: HEPATITIS C
     Dosage: 90 ?G, QW
     Route: 058
     Dates: start: 20130405
  4. MULTIVITAMIN [Concomitant]
     Indication: MEDICAL DIET
     Dosage: 1 DF, QD
     Route: 048

REACTIONS (1)
  - Pruritus generalised [Not Recovered/Not Resolved]
